FAERS Safety Report 7228095-0 (Version None)
Quarter: 2011Q1

REPORT INFORMATION
  Report Type: 
  Country: None (occurrence: None)
  Receive Date: 20110106
  Receipt Date: 20101109
  Transmission Date: 20110831
  Serious: Yes (Other)
  Sender: FDA-Public Use
  Company Number: ACO_20301_2010

PATIENT
  Age: 49 Year
  Sex: Female
  Weight: 92.1 kg

DRUGS (9)
  1. NEURONTIN [Concomitant]
  2. LISINOPRIL [Concomitant]
  3. PAXIL (PAROXETINE HYDROCHHLORIDE) [Concomitant]
  4. SULFASALAZINE [Concomitant]
  5. AMPYRA [Suspect]
     Indication: GAIT DISTURBANCE
     Dosage: 10 MG BID, ORAL
     Route: 048
     Dates: start: 20101026
  6. BACLOFEN [Concomitant]
  7. REBIF [Concomitant]
  8. PLAQUENIL (HYDROXYCHOROQUINE PHOSPHATE) [Concomitant]
  9. NORVASC [Concomitant]

REACTIONS (4)
  - DIZZINESS [None]
  - INSOMNIA [None]
  - VERBIGERATION [None]
  - MEMORY IMPAIRMENT [None]
